FAERS Safety Report 7906022-8 (Version None)
Quarter: 2011Q4

REPORT INFORMATION
  Report Type: 
  Country: None (occurrence: None)
  Receive Date: 20111110
  Receipt Date: 20111103
  Transmission Date: 20120403
  Serious: Yes (Other)
  Sender: FDA-Public Use
  Company Number: DE-BRISTOL-MYERS SQUIBB COMPANY-16074114

PATIENT
  Age: 49 Year
  Sex: Male

DRUGS (4)
  1. MICARDIS [Concomitant]
  2. CORTISONE ACETATE [Concomitant]
     Dosage: SPRAY
  3. ABILIFY [Suspect]
     Indication: DELUSION
     Dates: start: 20110715, end: 20110919
  4. ALBUTEROL SULFATE AUTOHALER [Concomitant]

REACTIONS (1)
  - ASTHMA [None]
